FAERS Safety Report 22246568 (Version 1)
Quarter: 2023Q2

REPORT INFORMATION
  Report Type: Spontaneous
  Country: CN (occurrence: CN)
  Receive Date: 20230424
  Receipt Date: 20230424
  Transmission Date: 20230722
  Serious: Yes (Other)
  Sender: FDA-Public Use
  Company Number: GB-ABBOTT-10P-167-0638359-00

PATIENT
  Age: 56 Year
  Sex: Female
  Weight: 97 kg

DRUGS (13)
  1. VENCLEXTA [Suspect]
     Active Substance: VENETOCLAX
     Indication: Acute monocytic leukaemia
     Dosage: 400 MILLIGRAM
     Route: 048
     Dates: start: 20230313, end: 20230412
  2. FENOFIBRATE [Suspect]
     Active Substance: FENOFIBRATE
     Indication: Product used for unknown indication
     Dates: start: 200305, end: 200609
  3. FENOFIBRATE [Suspect]
     Active Substance: FENOFIBRATE
     Indication: Product used for unknown indication
     Dates: start: 200609
  4. AZACITIDINE [Suspect]
     Active Substance: AZACITIDINE
     Indication: Acute monocytic leukaemia
     Dosage: 100 MILLIGRAM
     Route: 058
     Dates: start: 20230307, end: 20230313
  5. PIOGLITAZONE [Suspect]
     Active Substance: PIOGLITAZONE
     Indication: Type 2 diabetes mellitus
     Route: 065
     Dates: start: 200702, end: 200705
  6. ROSIGLITAZONE [Suspect]
     Active Substance: ROSIGLITAZONE
     Indication: Product used for unknown indication
     Route: 065
     Dates: start: 200503, end: 200506
  7. ROSIGLITAZONE [Suspect]
     Active Substance: ROSIGLITAZONE
     Indication: Product used for unknown indication
     Dates: start: 200506, end: 200609
  8. SIMVASTATIN [Suspect]
     Active Substance: SIMVASTATIN
     Indication: Product used for unknown indication
     Route: 048
  9. ATORVASTATIN [Suspect]
     Active Substance: ATORVASTATIN
     Indication: Product used for unknown indication
     Route: 065
     Dates: end: 200402
  10. ROSUVASTATIN [Concomitant]
     Active Substance: ROSUVASTATIN
     Indication: Product used for unknown indication
     Route: 065
     Dates: start: 200402, end: 200506
  11. ROSUVASTATIN [Concomitant]
     Active Substance: ROSUVASTATIN
     Indication: Product used for unknown indication
     Route: 065
     Dates: start: 200506, end: 200608
  12. ROSUVASTATIN [Concomitant]
     Active Substance: ROSUVASTATIN
     Indication: Product used for unknown indication
     Route: 065
     Dates: start: 200608
  13. METFORMIN [Concomitant]
     Active Substance: METFORMIN HYDROCHLORIDE
     Indication: Type 2 diabetes mellitus

REACTIONS (5)
  - White blood cell count decreased [Recovering/Resolving]
  - High density lipoprotein decreased [Recovering/Resolving]
  - Granulocyte count decreased [Recovering/Resolving]
  - Myalgia [Recovering/Resolving]
  - Myelosuppression [Recovering/Resolving]

NARRATIVE: CASE EVENT DATE: 20060601
